FAERS Safety Report 4429584-4 (Version None)
Quarter: 2004Q3

REPORT INFORMATION
  Report Type: 
  Country: None (occurrence: None)
  Receive Date: 20040816
  Receipt Date: 20040805
  Transmission Date: 20050211
  Serious: Yes (Other)
  Sender: FDA-Public Use
  Company Number: 2004-08-0236

PATIENT
  Age: 40 Year
  Sex: Male

DRUGS (1)
  1. BETAMETHASONE DIPROPIONATE [Suspect]
     Indication: PSORIASIS
     Dosage: UNKNOWN TOP-DERM
     Route: 061

REACTIONS (7)
  - CATARACT SUBCAPSULAR [None]
  - INTRAOCULAR PRESSURE INCREASED [None]
  - OPTIC NEUROPATHY [None]
  - PUPILLARY DISORDER [None]
  - ROSACEA [None]
  - VISUAL ACUITY REDUCED [None]
  - VISUAL FIELD DEFECT [None]
